FAERS Safety Report 16238222 (Version 1)
Quarter: 2019Q2

REPORT INFORMATION
  Report Type: Spontaneous
  Country: GB (occurrence: GB)
  Receive Date: 20190425
  Receipt Date: 20190425
  Transmission Date: 20190711
  Serious: Yes (Other)
  Sender: FDA-Public Use
  Company Number: GB-MYLANLABS-2019M1037411

PATIENT
  Age: 58 Year
  Sex: Female
  Weight: 74 kg

DRUGS (2)
  1. GABAPENTIN. [Suspect]
     Active Substance: GABAPENTIN
     Indication: NEURALGIA
     Dosage: 300 MILLIGRAM, QD
     Route: 048
     Dates: start: 20180803, end: 20181031
  2. INDAPAMIDE. [Concomitant]
     Active Substance: INDAPAMIDE
     Dosage: UNK

REACTIONS (1)
  - Hallucination, visual [Recovering/Resolving]

NARRATIVE: CASE EVENT DATE: 20180915
